FAERS Safety Report 12433224 (Version 2)
Quarter: 2016Q2

REPORT INFORMATION
  Report Type: Spontaneous
  Country: FR (occurrence: FR)
  Receive Date: 20160603
  Receipt Date: 20160610
  Transmission Date: 20160815
  Serious: Yes (Life-Threatening, Hospitalization, Other)
  Sender: FDA-Public Use
  Company Number: FR-ELI_LILLY_AND_COMPANY-FR201605011055

PATIENT
  Age: 72 Year
  Sex: Male
  Weight: 60.5 kg

DRUGS (2)
  1. GEMZAR [Suspect]
     Active Substance: GEMCITABINE HYDROCHLORIDE
     Indication: TRANSITIONAL CELL CARCINOMA
     Dosage: 1 DF, OTHER
     Route: 042
     Dates: start: 20151117
  2. CISPLATIN. [Concomitant]
     Active Substance: CISPLATIN
     Indication: TRANSITIONAL CELL CARCINOMA
     Dosage: 1 DF, OTHER
     Route: 042
     Dates: start: 20151117

REACTIONS (10)
  - Toxicity to various agents [Unknown]
  - Cough [Recovered/Resolved]
  - Congestive cardiomyopathy [Unknown]
  - Chest pain [Recovered/Resolved]
  - Respiratory distress [Recovered/Resolved]
  - Myalgia [Recovered/Resolved]
  - Myocarditis [Unknown]
  - Metabolic alkalosis [Unknown]
  - Dyspnoea [Recovered/Resolved]
  - Pulmonary oedema [Recovered/Resolved]

NARRATIVE: CASE EVENT DATE: 201602
